FAERS Safety Report 9670421 (Version 2)
Quarter: 2013Q4

REPORT INFORMATION
  Report Type: Spontaneous
  Country: GB (occurrence: GB)
  Receive Date: 20131105
  Receipt Date: 20131105
  Transmission Date: 20140711
  Serious: Yes (Other)
  Sender: FDA-Public Use
  Company Number: PHHY2002GB002930

PATIENT
  Age: 58 Year
  Sex: Female

DRUGS (5)
  1. CLOZARIL [Suspect]
     Indication: SCHIZOPHRENIA
     Dosage: 450 MG, QD
     Route: 048
     Dates: start: 20020810
  2. FLUOXETINE [Concomitant]
     Dosage: 20 MG, QD
     Route: 048
     Dates: start: 200205, end: 20020808
  3. FLUOXETINE [Concomitant]
     Dosage: 20 MG, QD
     Route: 048
     Dates: start: 20020916
  4. FLUOXETINE [Concomitant]
     Dosage: 40 MG, QD
     Route: 048
     Dates: start: 20020808, end: 20020916
  5. PEN-VEE [Concomitant]
     Dosage: 250 MG, QID
     Route: 048

REACTIONS (8)
  - Reflexes abnormal [Unknown]
  - Balance disorder [Unknown]
  - Swelling face [Unknown]
  - Tooth abscess [Unknown]
  - Periorbital cellulitis [Unknown]
  - C-reactive protein increased [Unknown]
  - Drug level increased [Unknown]
  - Confusional state [Recovered/Resolved]
